FAERS Safety Report 4651458-4 (Version None)
Quarter: 2005Q2

REPORT INFORMATION
  Report Type: 
  Country: None (occurrence: None)
  Receive Date: 20050404
  Receipt Date: 20050125
  Transmission Date: 20051028
  Serious: Yes (Death)
  Sender: FDA-Public Use
  Company Number: USA050187780

PATIENT
  Age: 62 Year
  Sex: Male

DRUGS (6)
  1. ZYPREXA [Suspect]
     Dosage: 2.5 MG
     Dates: end: 20041005
  2. CYMBALTA [Suspect]
     Indication: MAJOR DEPRESSION
     Dosage: 20 MG/2 DAY
     Dates: start: 20040929, end: 20041005
  3. LORAZEPAM [Concomitant]
  4. LAMICTAL [Concomitant]
  5. GABITRIL [Concomitant]
  6. DURAGESIC (FENTANYL) [Concomitant]

REACTIONS (1)
  - COMPLETED SUICIDE [None]
